FAERS Safety Report 4471469-1 (Version None)
Quarter: 2004Q4

REPORT INFORMATION
  Report Type: 
  Country: None (occurrence: None)
  Receive Date: 20041006
  Receipt Date: 20040924
  Transmission Date: 20050328
  Serious: Yes (Hospitalization)
  Sender: FDA-Public Use
  Company Number: 2004-BP-08660RO

PATIENT
  Sex: 0

DRUGS (3)
  1. METHADONE HCL [Suspect]
  2. FLUNITRAZEPAM (FLUNITRAZEPAM) [Suspect]
  3. COCAINE (COCAINE) [Concomitant]

REACTIONS (8)
  - COMA [None]
  - DRUG LEVEL INCREASED [None]
  - DRUG SCREEN POSITIVE [None]
  - DRUG TOXICITY [None]
  - ELECTROCARDIOGRAM QT PROLONGED [None]
  - SINUS BRADYCARDIA [None]
  - TORSADE DE POINTES [None]
  - VENTRICULAR EXTRASYSTOLES [None]
